FAERS Safety Report 8957522 (Version 1)
Quarter: 2012Q4

REPORT INFORMATION
  Report Type: 
  Country: KR (occurrence: KR)
  Receive Date: 20121210
  Receipt Date: 20121210
  Transmission Date: 20130627
  Serious: Yes (Hospitalization)
  Sender: FDA-Public Use
  Company Number: PHHY2012KR112622

PATIENT
  Age: 26 Year
  Sex: Female

DRUGS (9)
  1. ETHAMBUTOL [Suspect]
     Indication: PULMONARY TUBERCULOSIS
     Dosage: 400 mg, UNK
  2. RIFAMPICIN [Suspect]
     Indication: PULMONARY TUBERCULOSIS
     Dosage: 150 mg, UNK
  3. RIFAMPICIN [Suspect]
     Dosage: 450 mg, UNK
  4. ISONIAZID [Concomitant]
     Indication: PULMONARY TUBERCULOSIS
     Dosage: 50 mg, UNK
  5. ISONIAZID [Concomitant]
     Dosage: 200 mg, UNK
  6. PIRAZINAMIDA [Concomitant]
     Indication: PULMONARY TUBERCULOSIS
     Dosage: 250 mg, UNK
  7. PIRAZINAMIDA [Concomitant]
     Dosage: 1250 mg, UNK
  8. LEVOFLOXACIN [Concomitant]
     Dosage: 700 mg, UNK
  9. STREPTOMYCIN [Concomitant]
     Dosage: 1 g, daily
     Route: 030

REACTIONS (9)
  - Drug reaction with eosinophilia and systemic symptoms [Recovered/Resolved]
  - Pyrexia [Recovered/Resolved]
  - Rash macular [Recovered/Resolved]
  - Lymphadenopathy [Recovered/Resolved]
  - Hepatosplenomegaly [Recovered/Resolved]
  - Dyspnoea [Unknown]
  - Pruritus [Unknown]
  - Hepatitis [Recovering/Resolving]
  - Eosinophilia [Recovering/Resolving]
